FAERS Safety Report 5495319-X (Version None)
Quarter: 2007Q4

REPORT INFORMATION
  Report Type: 
  Country: None (occurrence: None)
  Receive Date: 20071024
  Receipt Date: 20071012
  Transmission Date: 20080405
  Serious: Yes (Disabling, Other)
  Sender: FDA-Public Use
  Company Number: DK-MERCK-0609DNK00001

PATIENT
  Age: 49 Year
  Sex: Female

DRUGS (2)
  1. SIMVASTATIN [Concomitant]
     Indication: BLOOD CHOLESTEROL INCREASED
     Route: 048
     Dates: end: 20050120
  2. ZOCOR [Suspect]
     Indication: BLOOD CHOLESTEROL INCREASED
     Route: 048
     Dates: start: 20001201

REACTIONS (5)
  - ADVERSE EVENT [None]
  - ASTHENIA [None]
  - BIOPSY MUSCLE ABNORMAL [None]
  - NEUROPATHY [None]
  - PAIN [None]
